FAERS Safety Report 8888354 (Version 2)
Quarter: 2013Q1

REPORT INFORMATION
  Report Type: Spontaneous
  Country: US (occurrence: US)
  Receive Date: 20121106
  Receipt Date: 20130107
  Transmission Date: 20140127
  Serious: No
  Sender: FDA-Public Use
  Company Number: US-PFIZER INC-2012273302

PATIENT
  Age: 65 Year
  Sex: Male
  Weight: 81.63 kg

DRUGS (2)
  1. INLYTA [Suspect]
     Indication: RENAL CELL CARCINOMA
     Dosage: 5 MG, 2X/DAY
     Route: 048
     Dates: start: 20120523, end: 20121031
  2. DILTIAZEM [Concomitant]
     Dosage: 240 MG, 1X/DAY
     Route: 048

REACTIONS (7)
  - Disease progression [Unknown]
  - Renal cell carcinoma [Unknown]
  - Renal disorder [Unknown]
  - Red blood cell count decreased [Unknown]
  - Dyspnoea [Recovered/Resolved]
  - Nausea [Recovered/Resolved]
  - Malaise [Recovered/Resolved]
